FAERS Safety Report 5755700-8 (Version None)
Quarter: 2008Q2

REPORT INFORMATION
  Report Type: 
  Country: None (occurrence: None)
  Receive Date: 20080602
  Receipt Date: 20080526
  Transmission Date: 20081010
  Serious: Yes (Hospitalization)
  Sender: FDA-Public Use
  Company Number: JP-ASTRAZENECA-2008AP02895

PATIENT
  Age: 29683 Day
  Sex: Female

DRUGS (11)
  1. CRESTOR [Suspect]
     Indication: HYPERLIPIDAEMIA
     Route: 048
     Dates: start: 20080329, end: 20080413
  2. RENIVACE [Concomitant]
     Indication: HYPERTENSION
     Route: 048
     Dates: start: 20080329
  3. PLAVIX [Concomitant]
     Indication: ANGINA PECTORIS
     Route: 048
     Dates: start: 20080402
  4. OPALMON [Concomitant]
     Indication: ARTERIOSCLEROSIS OBLITERANS
     Route: 048
     Dates: start: 20080408
  5. NORVASC [Concomitant]
     Indication: HYPERTENSION
     Route: 048
  6. FAMOTIDINE [Concomitant]
     Indication: GASTRITIS
     Route: 048
  7. NITOROL R [Concomitant]
     Indication: ANGINA PECTORIS
     Route: 048
  8. ASPIRIN [Concomitant]
     Indication: ANGINA PECTORIS
     Route: 048
  9. HALFDIGOXIN [Concomitant]
     Indication: ATRIAL FIBRILLATION
     Route: 048
  10. OMEPRAZOLE [Concomitant]
     Dosage: DOSE UNKNOWN
     Route: 048
  11. ADALAT [Concomitant]
     Dosage: DOSE UNKNOWN
     Route: 048

REACTIONS (2)
  - PERICARDITIS [None]
  - PLEURISY [None]
